FAERS Safety Report 21096678 (Version 2)
Quarter: 2022Q3

REPORT INFORMATION
  Report Type: Spontaneous
  Country: US (occurrence: US)
  Receive Date: 20220718
  Receipt Date: 20220928
  Transmission Date: 20221027
  Serious: No
  Sender: FDA-Public Use
  Company Number: US-JUBILANT PHARMA LTD-2022US000210

PATIENT

DRUGS (2)
  1. RUBY-FILL [Suspect]
     Active Substance: RUBIDIUM CHLORIDE RB-82
     Indication: Product used for unknown indication
     Dosage: 7.09 MCI, SINGLE DOSE
     Dates: start: 20220511, end: 20220511
  2. RUBY-FILL [Suspect]
     Active Substance: RUBIDIUM CHLORIDE RB-82
     Dosage: 17.56 MCI, SINGLE DOSE
     Dates: start: 20220511, end: 20220511

REACTIONS (2)
  - Drug ineffective [Unknown]
  - Underdose [Unknown]
